FAERS Safety Report 7408454-3 (Version None)
Quarter: 2011Q2

REPORT INFORMATION
  Report Type: 
  Country: None (occurrence: None)
  Receive Date: 20110412
  Receipt Date: 20101025
  Transmission Date: 20111010
  Serious: Yes (Other)
  Sender: FDA-Public Use
  Company Number: US-BAYER-201030210NA

PATIENT
  Age: 45 Year
  Sex: Female
  Weight: 130 kg

DRUGS (8)
  1. YAZ [Suspect]
     Indication: PRODUCT USED FOR UNKNOWN INDICATION
     Route: 048
     Dates: start: 20071101, end: 20091201
  2. YASMIN [Suspect]
     Indication: PRODUCT USED FOR UNKNOWN INDICATION
     Dosage: UNK
     Route: 048
     Dates: start: 20071101, end: 20091201
  3. OMEPRAZOLE [Concomitant]
     Dosage: 20 MG, UNK
     Dates: start: 20081212
  4. OCELLA [Suspect]
     Indication: PRODUCT USED FOR UNKNOWN INDICATION
     Dosage: UNK
     Dates: start: 20071101, end: 20091201
  5. FISH OIL [Concomitant]
  6. GLUCOSAMIN [Concomitant]
  7. OXYCODONE HCL AND ACETAMINOPHEN [Concomitant]
     Dosage: UNK
     Dates: start: 20080107
  8. MULTI-VITAMIN [Concomitant]

REACTIONS (8)
  - DIARRHOEA [None]
  - DYSPEPSIA [None]
  - CHOLECYSTITIS [None]
  - PAIN [None]
  - HEPATOBILIARY SCAN ABNORMAL [None]
  - CHOLELITHIASIS [None]
  - CHOLECYSTITIS CHRONIC [None]
  - GALLBLADDER CHOLESTEROLOSIS [None]
